FAERS Safety Report 7827530-4 (Version None)
Quarter: 2011Q4

REPORT INFORMATION
  Report Type: 
  Country: None (occurrence: None)
  Receive Date: 20111020
  Receipt Date: 20111012
  Transmission Date: 20120403
  Serious: No
  Sender: FDA-Public Use
  Company Number: PHHY2011US51549

PATIENT
  Sex: Female
  Weight: 72.562 kg

DRUGS (6)
  1. SYNTHROID [Concomitant]
     Indication: HYPOTHYROIDISM
     Dosage: 0.100 G, PER DAY
     Route: 048
     Dates: start: 20000301
  2. TYLENOL-500 [Concomitant]
     Dosage: 650 MG, DAILY
  3. ZANTAC [Concomitant]
     Dosage: UNK UKN, UNK
  4. ATENOLOL [Concomitant]
     Indication: HYPERTENSION
     Dosage: 25 MG, QD
     Route: 048
     Dates: start: 20010220
  5. TASIGNA [Suspect]
     Indication: LEUKAEMIA
     Dosage: 200 MG, BID
     Route: 048
     Dates: end: 20110930
  6. ELAVIL [Concomitant]
     Indication: INSOMNIA
     Dosage: 25 MG, Q4H
     Route: 048
     Dates: start: 20010905

REACTIONS (6)
  - COUGH [None]
  - MYALGIA [None]
  - POLLAKIURIA [None]
  - SINUSITIS [None]
  - ABDOMINAL PAIN [None]
  - BACK PAIN [None]
